FAERS Safety Report 17609134 (Version 45)
Quarter: 2025Q1

REPORT INFORMATION
  Report Type: Report from Study
  Country: US (occurrence: US)
  Receive Date: 20200401
  Receipt Date: 20250326
  Transmission Date: 20250409
  Serious: Yes (Hospitalization, Other)
  Sender: TAKEDA
  Company Number: US-SHIRE-US202011949

PATIENT
  Sex: Male
  Weight: 104 kg

DRUGS (63)
  1. HUMAN IMMUNOGLOBULIN G [Suspect]
     Active Substance: HUMAN IMMUNOGLOBULIN G
     Indication: Immunodeficiency common variable
     Dosage: 68 GRAM, Q4WEEKS
     Dates: start: 20191016
  2. HUMAN IMMUNOGLOBULIN G [Suspect]
     Active Substance: HUMAN IMMUNOGLOBULIN G
     Dosage: 68 GRAM, Q4WEEKS
     Dates: start: 20191017
  3. HUMAN IMMUNOGLOBULIN G [Suspect]
     Active Substance: HUMAN IMMUNOGLOBULIN G
     Dosage: 55 GRAM, Q4WEEKS
  4. DIPHENHYDRAMINE HYDROCHLORIDE [Concomitant]
     Active Substance: DIPHENHYDRAMINE HYDROCHLORIDE
  5. PFIZER-BIONTECH COVID-19 VACCINE [Concomitant]
     Active Substance: TOZINAMERAN
  6. EPINEPHRINE [Concomitant]
     Active Substance: EPINEPHRINE
  7. SODIUM CHLORIDE [Concomitant]
     Active Substance: SODIUM CHLORIDE
  8. LISINOPRIL [Concomitant]
     Active Substance: LISINOPRIL
  9. DOCUSATE SODIUM [Concomitant]
     Active Substance: DOCUSATE SODIUM
  10. WARFARIN SODIUM [Concomitant]
     Active Substance: WARFARIN SODIUM
  11. ACETAMINOPHEN [Concomitant]
     Active Substance: ACETAMINOPHEN
  12. LASIX [Concomitant]
     Active Substance: FUROSEMIDE
  13. VITAMIN D3 [Concomitant]
     Active Substance: CHOLECALCIFEROL
  14. MELATONIN [Concomitant]
     Active Substance: MELATONIN
  15. VITAMIN C [Concomitant]
     Active Substance: ASCORBIC ACID
  16. OXYGEN [Concomitant]
     Active Substance: OXYGEN
  17. PRAVASTATIN SODIUM [Concomitant]
     Active Substance: PRAVASTATIN SODIUM
  18. METFORMIN HYDROCHLORIDE [Concomitant]
     Active Substance: METFORMIN HYDROCHLORIDE
  19. AMIODARONE HYDROCHLORIDE [Concomitant]
     Active Substance: AMIODARONE HYDROCHLORIDE
  20. MELOXICAM [Concomitant]
     Active Substance: MELOXICAM
  21. NORVASC [Concomitant]
     Active Substance: AMLODIPINE BESYLATE
  22. TAMSULOSIN HYDROCHLORIDE [Concomitant]
     Active Substance: TAMSULOSIN HYDROCHLORIDE
  23. LIDOCAINE [Concomitant]
     Active Substance: LIDOCAINE
  24. PROPRANOLOL HYDROCHLORIDE [Concomitant]
     Active Substance: PROPRANOLOL HYDROCHLORIDE
  25. OZEMPIC [Concomitant]
     Active Substance: SEMAGLUTIDE
  26. LANTUS [Concomitant]
     Active Substance: INSULIN GLARGINE
  27. COUMADIN [Concomitant]
     Active Substance: WARFARIN SODIUM
  28. AZITHROMYCIN [Concomitant]
     Active Substance: AZITHROMYCIN
  29. LIPITOR [Concomitant]
     Active Substance: ATORVASTATIN CALCIUM
  30. GUAIFENESIN [Concomitant]
     Active Substance: GUAIFENESIN
  31. MAGNESIUM [Concomitant]
     Active Substance: MAGNESIUM
  32. ATORVASTATIN [Concomitant]
     Active Substance: ATORVASTATIN
  33. SODIUM CHLORIDE [Concomitant]
     Active Substance: SODIUM CHLORIDE
  34. PANTOPRAZOLE [Concomitant]
     Active Substance: PANTOPRAZOLE
  35. ALBUTEROL [Concomitant]
     Active Substance: ALBUTEROL
  36. FLOVENT [Concomitant]
     Active Substance: FLUTICASONE PROPIONATE
  37. IBUPROFEN [Concomitant]
     Active Substance: IBUPROFEN
  38. SUPER B 50 COMPLEX [Concomitant]
  39. PROPRANOLOL [Concomitant]
     Active Substance: PROPRANOLOL HYDROCHLORIDE
  40. TRAZODONE [Concomitant]
     Active Substance: TRAZODONE HYDROCHLORIDE
  41. DOXYCYCLINE HYCLATE [Concomitant]
     Active Substance: DOXYCYCLINE HYCLATE
  42. BUDESONIDE [Concomitant]
     Active Substance: BUDESONIDE
  43. IPRATROPIUM BROMIDE AND ALBUTEROL SULFATE [Concomitant]
     Active Substance: ALBUTEROL SULFATE\IPRATROPIUM BROMIDE
  44. METOLAZONE [Concomitant]
     Active Substance: METOLAZONE
  45. AMOXICILLIN [Concomitant]
     Active Substance: AMOXICILLIN
  46. FUROSEMIDE [Concomitant]
     Active Substance: FUROSEMIDE
  47. FARXIGA [Concomitant]
     Active Substance: DAPAGLIFLOZIN PROPANEDIOL
  48. FORMOTEROL FUMARATE [Concomitant]
     Active Substance: FORMOTEROL FUMARATE
  49. LOVENOX [Concomitant]
     Active Substance: ENOXAPARIN SODIUM
  50. ZYRTEC [Concomitant]
     Active Substance: CETIRIZINE HYDROCHLORIDE
  51. JANUVIA [Concomitant]
     Active Substance: SITAGLIPTIN PHOSPHATE
  52. FEXOFENADINE HYDROCHLORIDE [Concomitant]
     Active Substance: FEXOFENADINE HYDROCHLORIDE
  53. XYZAL [Concomitant]
     Active Substance: LEVOCETIRIZINE DIHYDROCHLORIDE
  54. ALLEGRA [Concomitant]
     Active Substance: FEXOFENADINE HYDROCHLORIDE
  55. GABAPENTIN [Concomitant]
     Active Substance: GABAPENTIN
  56. OXYCODONE HYDROCHLORIDE [Concomitant]
     Active Substance: OXYCODONE HYDROCHLORIDE
  57. FERROUS SULFATE [Concomitant]
     Active Substance: FERROUS SULFATE
  58. TRAZODONE HCL [Concomitant]
     Active Substance: TRAZODONE HYDROCHLORIDE
  59. HUMALOG [Concomitant]
     Active Substance: INSULIN LISPRO
  60. PANTOPRAZOLE SODIUM [Concomitant]
     Active Substance: PANTOPRAZOLE SODIUM
  61. ELIQUIS [Concomitant]
     Active Substance: APIXABAN
  62. ASPIRIN [Concomitant]
     Active Substance: ASPIRIN
  63. CLOPIDOGREL [Concomitant]
     Active Substance: CLOPIDOGREL BISULFATE

REACTIONS (36)
  - Infection [Unknown]
  - Bronchitis [Unknown]
  - Fall [Unknown]
  - Lower limb fracture [Unknown]
  - Pneumonia [Recovering/Resolving]
  - Hip fracture [Unknown]
  - Cardiac failure congestive [Unknown]
  - Blood pressure increased [Unknown]
  - Upper respiratory tract infection [Not Recovered/Not Resolved]
  - Skin abrasion [Unknown]
  - Weight decreased [Unknown]
  - Fungal infection [Unknown]
  - Limb injury [Unknown]
  - Productive cough [Recovering/Resolving]
  - Nerve compression [Unknown]
  - COVID-19 [Unknown]
  - Respiratory tract infection [Unknown]
  - Head injury [Unknown]
  - Head discomfort [Unknown]
  - Musculoskeletal discomfort [Unknown]
  - Infusion related reaction [Unknown]
  - Oxygen saturation decreased [Unknown]
  - Infusion site extravasation [Unknown]
  - Infusion site reaction [Unknown]
  - Peripheral coldness [Unknown]
  - Oropharyngeal pain [Unknown]
  - Oedema peripheral [Unknown]
  - Pain in extremity [Unknown]
  - Cough [Unknown]
  - Tachycardia [Unknown]
  - Tremor [Unknown]
  - Back pain [Unknown]
  - Diarrhoea [Not Recovered/Not Resolved]
  - Myalgia [Unknown]
  - Arthralgia [Not Recovered/Not Resolved]
  - Dizziness [Unknown]
